FAERS Safety Report 11769629 (Version 4)
Quarter: 2016Q1

REPORT INFORMATION
  Report Type: Report from Study
  Country: GB (occurrence: GB)
  Receive Date: 20151123
  Receipt Date: 20160226
  Transmission Date: 20160525
  Serious: Yes (Death, Hospitalization, Other)
  Sender: FDA-Public Use
  Company Number: PHFR2015GB005874

PATIENT
  Age: 52 Year
  Sex: Male

DRUGS (1)
  1. LDK378 [Suspect]
     Active Substance: CERITINIB
     Indication: LUNG ADENOCARCINOMA
     Dosage: 750 MG, UNK
     Route: 048
     Dates: start: 20150630, end: 20150709

REACTIONS (14)
  - Malignant neoplasm progression [Fatal]
  - Bronchial secretion retention [Recovered/Resolved with Sequelae]
  - Hepatic steatosis [Not Recovered/Not Resolved]
  - Metastases to central nervous system [Fatal]
  - Pneumonitis [Recovered/Resolved with Sequelae]
  - Bone disorder [Not Recovered/Not Resolved]
  - Pulmonary mass [Fatal]
  - Lymphangitis [Not Recovered/Not Resolved]
  - Lung disorder [Fatal]
  - Bronchiectasis [Fatal]
  - Pleural effusion [Recovered/Resolved with Sequelae]
  - Dyspnoea [Not Recovered/Not Resolved]
  - Non-small cell lung cancer [Fatal]
  - Terminal state [Unknown]
